FAERS Safety Report 10518402 (Version 1)
Quarter: 2014Q4

REPORT INFORMATION
  Report Type: Spontaneous
  Country: GB (occurrence: GB)
  Receive Date: 20141015
  Receipt Date: 20141015
  Transmission Date: 20150528
  Serious: Yes (Other)
  Sender: FDA-Public Use
  Company Number: GB-AUROBINDO-AUR-APL-2014-10747

PATIENT
  Age: 22 Year
  Sex: Female
  Weight: 41 kg

DRUGS (1)
  1. GABAPENTIN. [Suspect]
     Active Substance: GABAPENTIN
     Indication: MIGRAINE
     Dosage: UNK
     Route: 048

REACTIONS (2)
  - Somnolence [Recovered/Resolved]
  - Fall [Recovered/Resolved]
